FAERS Safety Report 8586904-7 (Version None)
Quarter: 2012Q3

REPORT INFORMATION
  Report Type: 
  Country: None (occurrence: None)
  Receive Date: 20120810
  Receipt Date: 20120730
  Transmission Date: 20120928
  Serious: Yes (Other)
  Sender: FDA-Public Use
  Company Number: CHPA2012US017189

PATIENT
  Sex: Male

DRUGS (4)
  1. NUPERCAINAL HEMORRHOIDAL/ANES OINTMENT [Suspect]
     Dosage: UNK, UNK
     Route: 064
  2. VASELINE [Concomitant]
  3. NUPERCAINAL HEMORRHOIDAL/ANES OINTMENT [Suspect]
     Indication: SCRATCH
     Dosage: UNK, 2-4 TIMES PER DAY AS NEEDED
     Route: 061
  4. DRUG THERAPY NOS [Concomitant]

REACTIONS (7)
  - HYPOAESTHESIA [None]
  - OFF LABEL USE [None]
  - THERAPEUTIC RESPONSE UNEXPECTED [None]
  - EXPIRED DRUG ADMINISTERED [None]
  - CROHN'S DISEASE [None]
  - DIARRHOEA [None]
  - FOETAL EXPOSURE DURING PREGNANCY [None]
